FAERS Safety Report 12794975 (Version 1)
Quarter: 2016Q3

REPORT INFORMATION
  Report Type: Spontaneous
  Country: US (occurrence: US)
  Receive Date: 20160929
  Receipt Date: 20160929
  Transmission Date: 20161109
  Serious: No
  Sender: FDA-Public Use
  Company Number: US-BAUSCH-BL-2016-017781

PATIENT
  Age: 67 Year
  Sex: Female
  Weight: 56.75 kg

DRUGS (6)
  1. GENERIC CELEXA [Concomitant]
     Active Substance: CITALOPRAM HYDROBROMIDE
     Indication: DEPRESSED MOOD
     Dosage: HALF TABLET DAILY
     Route: 048
  2. ESTRADIOL TRANSDERMAL SYSTEM [Concomitant]
     Active Substance: ESTRADIOL
     Indication: HORMONE REPLACEMENT THERAPY
  3. DESLORATADINE. [Concomitant]
     Active Substance: DESLORATADINE
     Indication: SINUS DISORDER
     Route: 048
  4. JUBLIA [Suspect]
     Active Substance: EFINACONAZOLE
     Indication: ONYCHOMYCOSIS
     Dosage: APPLIED DAILY
     Route: 061
     Dates: start: 201506, end: 201607
  5. ALENDRONATE [Concomitant]
     Active Substance: ALENDRONATE SODIUM
     Indication: OSTEOPENIA
     Route: 048
  6. ESTRADIOL TRANSDERMAL SYSTEM [Concomitant]
     Active Substance: ESTRADIOL
     Indication: OSTEOPENIA
     Dosage: 2 PATCHES PER WEEK
     Route: 061
     Dates: start: 1986

REACTIONS (2)
  - Drug ineffective [Not Recovered/Not Resolved]
  - Off label use [Recovered/Resolved]

NARRATIVE: CASE EVENT DATE: 201506
